FAERS Safety Report 6316398-3 (Version None)
Quarter: 2009Q3

REPORT INFORMATION
  Report Type: 
  Country: None (occurrence: None)
  Receive Date: 20090820
  Receipt Date: 20090814
  Transmission Date: 20100115
  Serious: Yes (Death, Hospitalization)
  Sender: FDA-Public Use
  Company Number: B0588745A

PATIENT
  Age: 33 Year
  Sex: Female

DRUGS (8)
  1. SALBUTAMOL [Suspect]
     Route: 055
  2. METHADONE [Concomitant]
  3. DIAZEPAM [Concomitant]
  4. NIFEDIPINE [Concomitant]
  5. CITALOPRAM HYDROBROMIDE [Concomitant]
  6. ACETAMINOPHEN [Concomitant]
     Indication: TOOTHACHE
  7. FLUTICASONE [Concomitant]
     Route: 055
  8. NICOTINE [Concomitant]
     Route: 062

REACTIONS (1)
  - ASTHMA [None]
